FAERS Safety Report 8924091 (Version 1)
Quarter: 2012Q4

REPORT INFORMATION
  Report Type: 
  Country: US (occurrence: US)
  Receive Date: 20121126
  Receipt Date: 20121126
  Transmission Date: 20130627
  Serious: Yes (Hospitalization)
  Sender: FDA-Public Use
  Company Number: US-BAXTER-2012BAX023911

PATIENT
  Age: 45 Year
  Sex: Male

DRUGS (4)
  1. DIANEAL LOW CALCIUM [Suspect]
     Indication: PERITONEAL DIALYSIS
     Route: 033
     Dates: end: 20121013
  2. DIANEAL LOW CALCIUM [Suspect]
     Route: 033
     Dates: start: 20121027
  3. DIANEAL LOW CALCIUM [Suspect]
     Indication: PERITONEAL DIALYSIS
     Route: 033
     Dates: end: 20121013
  4. DIANEAL LOW CALCIUM [Suspect]
     Route: 033
     Dates: start: 20121027

REACTIONS (1)
  - Peritoneal adhesions [Recovering/Resolving]
